FAERS Safety Report 8419215-0 (Version None)
Quarter: 2012Q2

REPORT INFORMATION
  Report Type: 
  Country: None (occurrence: None)
  Receive Date: 20120530
  Receipt Date: 20120430
  Transmission Date: 20120825
  Serious: Yes (Hospitalization)
  Sender: FDA-Public Use
  Company Number: 2012P1021219

PATIENT
  Age: 76 Year
  Sex: Female
  Weight: 69.8539 kg

DRUGS (18)
  1. FRUSEMIDE TABLET [Concomitant]
  2. SERTRALINE TABLET [Concomitant]
  3. LOSARTAN POTASSIUM FILM-COATED TABLET [Concomitant]
  4. TERBUTALINE SULPHATE INHALATION POWDER [Concomitant]
  5. ZOLPIDEM TARTRATE TABLET [Concomitant]
  6. FLUTICAONSE+SALMETEROL UNSPECIFIED INHALER DEVICE [Concomitant]
  7. VERPAMIL HYDROCHLORIDE [Concomitant]
  8. PARACETAMOL TABLET EFFERVESCENT [Concomitant]
  9. SIMVASTATIN [Concomitant]
  10. DUOVENT NEBULISER SOLUTION [Concomitant]
  11. DIGOXIN [Concomitant]
  12. OXAZEPAM [Concomitant]
  13. POTASSIUM CHLORIDE [Concomitant]
  14. PRADAXA [Suspect]
     Indication: ILL-DEFINED DISORDER
     Dosage: 150 MG;PO
     Route: 048
     Dates: start: 20111205, end: 20120424
  15. PREDNISOLONE [Concomitant]
  16. BERODUAL [Concomitant]
  17. TIOTORPIUM CAPSULE [Concomitant]
  18. MORPHINE [Concomitant]

REACTIONS (2)
  - UNEVALUABLE EVENT [None]
  - IRON DEFICIENCY ANAEMIA [None]
